FAERS Safety Report 9614552 (Version 3)
Quarter: 2014Q1

REPORT INFORMATION
  Report Type: Report from Study
  Country: AU (occurrence: AU)
  Receive Date: 20131011
  Receipt Date: 20140219
  Transmission Date: 20141002
  Serious: Yes (Death, Other)
  Sender: FDA-Public Use
  Company Number: PHHY2013AU113982

PATIENT
  Sex: Female

DRUGS (1)
  1. CLOZARIL [Suspect]
     Dosage: 300 MG, DAILY
     Dates: start: 19931109

REACTIONS (6)
  - Decreased activity [Fatal]
  - Sepsis [Fatal]
  - Diabetes mellitus [Fatal]
  - Embolism [Unknown]
  - Pneumonia [Unknown]
  - Myocardial infarction [Unknown]
